FAERS Safety Report 9294857 (Version 1)
Quarter: 2013Q2

REPORT INFORMATION
  Report Type: Spontaneous
  Country: US (occurrence: US)
  Receive Date: 20130517
  Receipt Date: 20130517
  Transmission Date: 20140414
  Serious: Yes (Hospitalization)
  Sender: FDA-Public Use
  Company Number: US-MYLANLABS-2013S1009963

PATIENT
  Age: 52 Year
  Sex: Male

DRUGS (8)
  1. PREDNISONE [Suspect]
     Indication: IMMUNOSUPPRESSANT DRUG THERAPY
     Route: 065
  2. TACROLIMUS [Suspect]
     Indication: IMMUNOSUPPRESSANT DRUG THERAPY
     Route: 065
  3. MYCOPHENOLATE MOFETIL [Suspect]
     Indication: IMMUNOSUPPRESSANT DRUG THERAPY
     Route: 065
  4. VORICONAZOLE [Suspect]
     Indication: ASPERGILLUS INFECTION
     Route: 065
  5. VALGANCICLOVIR [Concomitant]
     Indication: PROPHYLAXIS
     Route: 065
  6. COTRIMOXAZOLE [Concomitant]
     Indication: PROPHYLAXIS
     Route: 065
  7. LEVOFLOXACIN [Concomitant]
     Route: 065
  8. CASPOFUNGIN [Concomitant]
     Indication: ASPERGILLUS INFECTION
     Route: 065

REACTIONS (4)
  - Aspergillus infection [Not Recovered/Not Resolved]
  - Zygomycosis [Not Recovered/Not Resolved]
  - Pulmonary mycosis [Not Recovered/Not Resolved]
  - Pulmonary haemorrhage [Not Recovered/Not Resolved]
